FAERS Safety Report 10313321 (Version 1)
Quarter: 2014Q3

REPORT INFORMATION
  Report Type: Spontaneous
  Country: US (occurrence: US)
  Receive Date: 20140718
  Receipt Date: 20140718
  Transmission Date: 20150326
  Serious: Yes (Other)
  Sender: FDA-Public Use
  Company Number: US-BAYER-2014-103944

PATIENT
  Age: 66 Year
  Sex: Female

DRUGS (1)
  1. BAYER GENUINE ASPIRIN [Suspect]
     Active Substance: ASPIRIN
     Indication: PYREXIA
     Dosage: 1 DF, UNK
     Route: 048
     Dates: start: 201403

REACTIONS (3)
  - Rectal haemorrhage [Recovered/Resolved]
  - Wrong technique in drug usage process [None]
  - Syncope [Recovered/Resolved]

NARRATIVE: CASE EVENT DATE: 201403
